FAERS Safety Report 12078131 (Version 1)
Quarter: 2016Q1

REPORT INFORMATION
  Report Type: Spontaneous
  Country: US (occurrence: US)
  Receive Date: 20160215
  Receipt Date: 20160215
  Transmission Date: 20160526
  Serious: Yes (Other)
  Sender: FDA-Public Use
  Company Number: US-TAKEDA-2016TUS002284

PATIENT
  Sex: Female

DRUGS (1)
  1. ENTYVIO [Suspect]
     Active Substance: VEDOLIZUMAB
     Indication: COLITIS ULCERATIVE
     Dosage: 300 MG, UNK
     Route: 063
     Dates: start: 20140922

REACTIONS (4)
  - Dysphagia [Not Recovered/Not Resolved]
  - Exposure during breast feeding [None]
  - Gastrooesophageal reflux disease [Not Recovered/Not Resolved]
  - Haematochezia [Not Recovered/Not Resolved]
